FAERS Safety Report 25713200 (Version 1)
Quarter: 2025Q3

REPORT INFORMATION
  Report Type: Report from Study
  Country: US (occurrence: US)
  Receive Date: 20250822
  Receipt Date: 20250822
  Transmission Date: 20251020
  Serious: Yes (Hospitalization, Other)
  Sender: JOHNSON AND JOHNSON
  Company Number: US-JNJFOC-20250823528

PATIENT
  Age: 52 Year
  Sex: Female

DRUGS (3)
  1. SPRAVATO [Suspect]
     Active Substance: ESKETAMINE
     Indication: Depression
     Route: 045
     Dates: start: 20240212, end: 20240304
  2. SPRAVATO [Suspect]
     Active Substance: ESKETAMINE
     Route: 045
     Dates: start: 20240307, end: 20250804
  3. SPRAVATO [Suspect]
     Active Substance: ESKETAMINE
     Route: 045
     Dates: start: 20250818, end: 20250818

REACTIONS (8)
  - Dissociation [Recovered/Resolved]
  - Hypertension [Recovered/Resolved]
  - Vomiting [Recovered/Resolved]
  - Screaming [Recovered/Resolved]
  - Agitation [Recovered/Resolved]
  - COVID-19 [Unknown]
  - Speech disorder [Recovered/Resolved]
  - Feeling hot [Recovered/Resolved]

NARRATIVE: CASE EVENT DATE: 20250818
